FAERS Safety Report 4648400-9 (Version None)
Quarter: 2005Q2

REPORT INFORMATION
  Report Type: 
  Country: None (occurrence: None)
  Receive Date: 20050427
  Receipt Date: 20050413
  Transmission Date: 20051028
  Serious: Yes (Hospitalization)
  Sender: FDA-Public Use
  Company Number: ANTE001360

PATIENT
  Age: 50 Year
  Sex: Male

DRUGS (11)
  1. NATALIZUMAB (NATALIZUMAB) [Suspect]
     Indication: RHEUMATOID ARTHRITIS
     Dosage: 300 MG; QM; IV
     Route: 042
     Dates: start: 20041007, end: 20041007
  2. METHOTREXATE [Concomitant]
  3. FOLIC ACID [Concomitant]
  4. METHYLPREDNISOLONE [Concomitant]
  5. CELECOXIB [Concomitant]
  6. SORBIFER DURULES [Concomitant]
  7. RANITIDINE [Concomitant]
  8. CALCIUM GLUCONATE [Concomitant]
  9. ALLOPURINOL [Concomitant]
  10. ERGOCALCIFEROL [Concomitant]
  11. METHYLPREDNISOLONE [Concomitant]

REACTIONS (23)
  - ADHESION [None]
  - APHTHOUS STOMATITIS [None]
  - ATRIAL FLUTTER [None]
  - BRONCHOPNEUMONIA [None]
  - DECUBITUS ULCER [None]
  - ELECTROCARDIOGRAM ST SEGMENT ELEVATION [None]
  - EMPYEMA [None]
  - GENERALISED OEDEMA [None]
  - HYPERHIDROSIS [None]
  - HYPOPROTEINAEMIA [None]
  - IATROGENIC INJURY [None]
  - JOINT ANKYLOSIS [None]
  - JOINT RANGE OF MOTION DECREASED [None]
  - MALNUTRITION [None]
  - MINERAL METABOLISM DISORDER [None]
  - MYOCARDIAL ISCHAEMIA [None]
  - PNEUMOTHORAX [None]
  - PROCEDURAL COMPLICATION [None]
  - PSEUDOMONAS INFECTION [None]
  - SEPSIS [None]
  - SEPTIC ARTHRITIS STAPHYLOCOCCAL [None]
  - TREMOR [None]
  - TROPONIN INCREASED [None]
